FAERS Safety Report 20449311 (Version 1)
Quarter: 2022Q1

REPORT INFORMATION
  Report Type: Spontaneous
  Country: SI (occurrence: SI)
  Receive Date: 20220209
  Receipt Date: 20220209
  Transmission Date: 20220423
  Serious: Yes (Other)
  Sender: FDA-Public Use
  Company Number: SI-OTSUKA-2022_001768

PATIENT
  Age: 24 Year

DRUGS (3)
  1. OLANZAPINE [Suspect]
     Active Substance: OLANZAPINE
     Indication: Product used for unknown indication
     Dosage: 20 MG, UNKNOWN
     Route: 065
  2. REXULTI [Suspect]
     Active Substance: BREXPIPRAZOLE
     Indication: Schizophrenia
  3. REXULTI [Suspect]
     Active Substance: BREXPIPRAZOLE
     Indication: Psychotic disorder
     Dosage: 4 MG
     Route: 065
     Dates: start: 202106

REACTIONS (1)
  - Epilepsy [Unknown]
